FAERS Safety Report 10198321 (Version 5)
Quarter: 2014Q4

REPORT INFORMATION
  Report Type: Spontaneous
  Country: US (occurrence: US)
  Receive Date: 20140527
  Receipt Date: 20141110
  Transmission Date: 20150528
  Serious: Yes (Hospitalization)
  Sender: FDA-Public Use
  Company Number: US-BAYER-2014-077416

PATIENT
  Age: 22 Year
  Sex: Female
  Weight: 61.22 kg

DRUGS (1)
  1. MIRENA [Suspect]
     Active Substance: LEVONORGESTREL
     Indication: CONTRACEPTION
     Dosage: 20 MCG/24HR, CONT
     Route: 015
     Dates: start: 20110713, end: 20120516

REACTIONS (10)
  - Urinary tract infection [Not Recovered/Not Resolved]
  - Injury [None]
  - Post procedural discomfort [None]
  - Medical device pain [None]
  - Ectopic pregnancy with contraceptive device [None]
  - Procedural pain [None]
  - Embedded device [None]
  - Drug ineffective [None]
  - Ovarian cyst [None]
  - Abdominal pain [None]

NARRATIVE: CASE EVENT DATE: 201109
